FAERS Safety Report 23749218 (Version 1)
Quarter: 2024Q2

REPORT INFORMATION
  Report Type: Spontaneous
  Country: CN (occurrence: CN)
  Receive Date: 20240416
  Receipt Date: 20240416
  Transmission Date: 20240715
  Serious: Yes (Hospitalization)
  Sender: FDA-Public Use
  Company Number: CN-PFIZER INC-PV202400048739

PATIENT
  Age: 66 Year
  Sex: Male
  Weight: 65 kg

DRUGS (3)
  1. AXITINIB [Suspect]
     Active Substance: AXITINIB
     Indication: Renal cancer
     Dosage: 5 MG, 2X/DAY
     Route: 048
     Dates: start: 20240401, end: 20240410
  2. SINTILIMAB [Suspect]
     Active Substance: SINTILIMAB
     Indication: Renal cancer
     Dosage: 200 MG, 1X/DAY
     Route: 041
     Dates: start: 20240401, end: 20240401
  3. SODIUM CHLORIDE [Concomitant]
     Active Substance: SODIUM CHLORIDE
     Indication: Vehicle solution use
     Dosage: 100 ML, 1X/DAY
     Route: 041
     Dates: start: 20240401, end: 20240401

REACTIONS (4)
  - Nephropathy toxic [Unknown]
  - Eczema [Unknown]
  - Pruritus [Unknown]
  - Protein urine present [Unknown]

NARRATIVE: CASE EVENT DATE: 20240410
